FAERS Safety Report 11755324 (Version 2)
Quarter: 2015Q4

REPORT INFORMATION
  Report Type: Spontaneous
  Country: JP (occurrence: JP)
  Receive Date: 20151119
  Receipt Date: 20151223
  Transmission Date: 20160304
  Serious: Yes (Other)
  Sender: FDA-Public Use
  Company Number: PHHY2015JP128400

PATIENT
  Age: 72 Year
  Sex: Female

DRUGS (2)
  1. NEORAL [Suspect]
     Active Substance: CYCLOSPORINE
     Indication: APLASTIC ANAEMIA
     Dosage: 200 MG, QD
     Route: 048
     Dates: start: 20150307, end: 20150729
  2. REVOLADE TAB [Suspect]
     Active Substance: ELTROMBOPAG
     Indication: APLASTIC ANAEMIA
     Dosage: 12.5 MG, QD
     Route: 048
     Dates: start: 20150518, end: 20150731

REACTIONS (3)
  - Blood creatinine increased [Recovering/Resolving]
  - Renal impairment [Unknown]
  - Off label use [Unknown]

NARRATIVE: CASE EVENT DATE: 20150521
